FAERS Safety Report 14476551 (Version 1)
Quarter: 2018Q1

REPORT INFORMATION
  Report Type: Spontaneous
  Country: US (occurrence: US)
  Receive Date: 20180201
  Receipt Date: 20180201
  Transmission Date: 20180509
  Serious: No
  Sender: FDA-Public Use
  Company Number: US-SA-2017SA225178

PATIENT
  Sex: Female

DRUGS (6)
  1. ESTRACE [Concomitant]
     Active Substance: ESTRADIOL
     Route: 065
  2. FARXIGA [Concomitant]
     Active Substance: DAPAGLIFLOZIN PROPANEDIOL
     Route: 065
  3. ACTOS [Concomitant]
     Active Substance: PIOGLITAZONE HYDROCHLORIDE
     Route: 065
  4. PRALUENT [Suspect]
     Active Substance: ALIROCUMAB
     Indication: ESSENTIAL HYPERTENSION
     Route: 058
  5. ALIROCUMAB PREFILLED PEN [Suspect]
     Active Substance: ALIROCUMAB
     Indication: ESSENTIAL HYPERTENSION
  6. LEVOTHYROXINE SODIUM. [Concomitant]
     Active Substance: LEVOTHYROXINE SODIUM
     Route: 065

REACTIONS (1)
  - Fatigue [Not Recovered/Not Resolved]
